FAERS Safety Report 6152430-8 (Version None)
Quarter: 2009Q2

REPORT INFORMATION
  Report Type: 
  Country: None (occurrence: None)
  Receive Date: 20090413
  Receipt Date: 20090406
  Transmission Date: 20091009
  Serious: Yes (Life-Threatening, Hospitalization)
  Sender: FDA-Public Use
  Company Number: JP-ABBOTT-09P-087-0562168-00

PATIENT
  Sex: Female
  Weight: 45 kg

DRUGS (3)
  1. LEUPLIN SR FOR INJECTION 11.25 MG [Suspect]
     Indication: ENDOMETRIOSIS
     Route: 058
     Dates: start: 20090223
  2. LEUPLIN SR FOR INJECTION 11.25 MG [Suspect]
     Indication: UTERINE LEIOMYOMA
  3. LEUPLIN SR FOR INJECTION 11.25 MG [Suspect]
     Indication: ADENOMYOSIS

REACTIONS (1)
  - CEREBRAL INFARCTION [None]
